FAERS Safety Report 4290902-1 (Version None)
Quarter: 2004Q1

REPORT INFORMATION
  Report Type: 
  Country: None (occurrence: None)
  Receive Date: 20040209
  Receipt Date: 20040127
  Transmission Date: 20041129
  Serious: Yes (Other)
  Sender: FDA-Public Use
  Company Number: IT-JNJFOC-20040105425

PATIENT
  Age: 45 Year
  Sex: Male

DRUGS (1)
  1. INFLIXIMAB (INFLIXIMAB, RECOMBINANT) LYOPHILIZED POWDER [Suspect]
     Indication: ARTHRITIS
     Dosage: 5 MG/KG, INTRAVENOUS
     Route: 042
     Dates: start: 20020501

REACTIONS (6)
  - ARTHRITIS [None]
  - ASPIRATION JOINT [None]
  - C-REACTIVE PROTEIN INCREASED [None]
  - MORAXELLA INFECTION [None]
  - PURULENCE [None]
  - RED BLOOD CELL SEDIMENTATION RATE INCREASED [None]
